FAERS Safety Report 6210707-1 (Version None)
Quarter: 2009Q2

REPORT INFORMATION
  Report Type: 
  Country: None (occurrence: None)
  Receive Date: 20090528
  Receipt Date: 20090528
  Transmission Date: 20091009
  Serious: Yes (Hospitalization)
  Sender: FDA-Public Use
  Company Number: None

PATIENT
  Sex: Female
  Weight: 68.2 kg

DRUGS (7)
  1. CAPCITABINE 500 MG + 150 MG TABLETS [Suspect]
     Indication: BILE DUCT CANCER
     Dosage: 1650 MG BID DAY 1-14
     Route: 048
     Dates: start: 20090401, end: 20090415
  2. CAPCITABINE 500 MG + 150 MG TABLETS [Suspect]
     Indication: BILE DUCT CANCER
     Dosage: 1650 MG BID DAY 1-14
     Route: 048
     Dates: start: 20090422, end: 20090502
  3. CAPCITABINE 500 MG + 150 MG TABLETS [Suspect]
     Indication: BILE DUCT CANCER
     Dosage: 1650 MG BID DAY 1-14
     Route: 048
     Dates: start: 20090513, end: 20090526
  4. ACLOVATE [Concomitant]
  5. ATIVAN [Concomitant]
  6. ZOFRAN [Concomitant]
  7. PROCHLORPERAZINE MALEATE [Concomitant]

REACTIONS (4)
  - BILE DUCT OBSTRUCTION [None]
  - BILE DUCT STONE [None]
  - CONJUNCTIVAL HAEMORRHAGE [None]
  - THROMBOSIS [None]
